FAERS Safety Report 15364260 (Version 1)
Quarter: 2018Q3

REPORT INFORMATION
  Report Type: Spontaneous
  Country: GB (occurrence: GB)
  Receive Date: 20180909
  Receipt Date: 20180909
  Transmission Date: 20181010
  Serious: Yes (Other)
  Sender: FDA-Public Use
  Company Number: PHHY2018GB091065

PATIENT
  Sex: Female
  Weight: 10.75 kg

DRUGS (2)
  1. OCTREOTIDE. [Suspect]
     Active Substance: OCTREOTIDE
     Indication: PRODUCT USED FOR UNKNOWN INDICATION
     Dosage: UNK UNK, BID
     Route: 058
  2. SOMATULINE [Suspect]
     Active Substance: LANREOTIDE ACETATE
     Indication: HYPERINSULINAEMIC HYPOGLYCAEMIA
     Dosage: 30 MG, Q4W
     Route: 058

REACTIONS (2)
  - Cholelithiasis [Unknown]
  - Off label use [Unknown]
